FAERS Safety Report 9919666 (Version 14)
Quarter: 2015Q4

REPORT INFORMATION
  Report Type: Report from Study
  Country: US (occurrence: US)
  Receive Date: 20140224
  Receipt Date: 20151030
  Transmission Date: 20160305
  Serious: Yes (Hospitalization, Other)
  Sender: FDA-Public Use
  Company Number: US-SA-2014SA006377

PATIENT
  Age: 43 Year
  Sex: Male

DRUGS (4)
  1. COPAXONE [Concomitant]
     Active Substance: GLATIRAMER ACETATE
     Indication: MULTIPLE SCLEROSIS
     Dates: start: 20050301, end: 20140102
  2. BACLOFEN. [Suspect]
     Active Substance: BACLOFEN
     Route: 065
  3. AUBAGIO [Suspect]
     Active Substance: TERIFLUNOMIDE
     Indication: MULTIPLE SCLEROSIS
     Route: 048
  4. AUBAGIO [Suspect]
     Active Substance: TERIFLUNOMIDE
     Indication: MULTIPLE SCLEROSIS
     Route: 048
     Dates: start: 20140108, end: 201409

REACTIONS (25)
  - Memory impairment [Unknown]
  - Panic attack [Unknown]
  - Loss of consciousness [Unknown]
  - Decreased appetite [Unknown]
  - Depression [Unknown]
  - Dysstasia [Not Recovered/Not Resolved]
  - Contusion [Unknown]
  - Alopecia [Unknown]
  - Drug dose omission [Unknown]
  - Fall [Unknown]
  - Sciatica [Unknown]
  - Influenza like illness [Unknown]
  - Muscular weakness [Unknown]
  - Pollakiuria [Not Recovered/Not Resolved]
  - Fatigue [Unknown]
  - Road traffic accident [Unknown]
  - Flushing [Unknown]
  - Visual acuity reduced [Unknown]
  - Temperature intolerance [Not Recovered/Not Resolved]
  - Head injury [Unknown]
  - Paraesthesia [Unknown]
  - Clumsiness [Unknown]
  - Disturbance in social behaviour [Unknown]
  - Palpitations [Unknown]
  - Balance disorder [Unknown]

NARRATIVE: CASE EVENT DATE: 201409
